FAERS Safety Report 4920072-5 (Version None)
Quarter: 2006Q1

REPORT INFORMATION
  Report Type: 
  Country: None (occurrence: None)
  Receive Date: 20060217
  Receipt Date: 20060209
  Transmission Date: 20060701
  Serious: Yes (Hospitalization, Other)
  Sender: FDA-Public Use
  Company Number: 2006020345

PATIENT
  Age: 24 Year
  Sex: Male

DRUGS (1)
  1. DILANTIN KAPSEAL [Suspect]
     Indication: CONVULSION
     Dosage: 600 MG (100 MG, 6 IN 1 D), ORAL
     Route: 048
     Dates: start: 20050101

REACTIONS (4)
  - ANTICONVULSANT DRUG LEVEL INCREASED [None]
  - CONVULSION [None]
  - PNEUMONIA ASPIRATION [None]
  - TREATMENT NONCOMPLIANCE [None]
